FAERS Safety Report 10494381 (Version 1)
Quarter: 2014Q4

REPORT INFORMATION
  Report Type: Spontaneous
  Country: NL (occurrence: None)
  Receive Date: 20141001
  Receipt Date: 20141001
  Transmission Date: 20150528
  Serious: Yes (Disabling)
  Sender: FDA-Public Use
  Company Number: INT_00429_2014

PATIENT
  Sex: Male

DRUGS (2)
  1. PACLITAXEL (PACLITAXEL) [Suspect]
     Active Substance: PACLITAXEL
     Indication: FOETAL EXPOSURE DURING PREGNANCY
     Dosage: 1X/WEEK
     Route: 064
  2. CISPLATIN (CISPLATIN) (HQ SPECIALTY) [Suspect]
     Active Substance: CISPLATIN
     Indication: FOETAL EXPOSURE DURING PREGNANCY
     Dosage: 1X/WEEK
     Route: 064

REACTIONS (5)
  - Deafness bilateral [None]
  - Deafness congenital [None]
  - Ototoxicity [None]
  - Caesarean section [None]
  - Maternal drugs affecting foetus [None]
